FAERS Safety Report 23600774 (Version 1)
Quarter: 2024Q1

REPORT INFORMATION
  Report Type: Spontaneous
  Country: ES (occurrence: ES)
  Receive Date: 20240306
  Receipt Date: 20240306
  Transmission Date: 20240410
  Serious: Yes (Death, Hospitalization)
  Sender: FDA-Public Use
  Company Number: None

PATIENT
  Age: 75 Year
  Sex: Female
  Weight: 78 kg

DRUGS (3)
  1. CARBOPLATIN [Suspect]
     Active Substance: CARBOPLATIN
     Indication: Lung neoplasm malignant
     Dosage: TIME INTERVAL: TOTAL: 350 MG SINGLE DOSE, CARBOPLATINO (2323A)
     Route: 042
     Dates: start: 20231010, end: 20231010
  2. ETOPOSIDE [Suspect]
     Active Substance: ETOPOSIDE
     Indication: Lung neoplasm malignant
     Dosage: 123 MG/DAY FOR 3 DAYS, ETOPOSIDO (518A)
     Route: 042
     Dates: start: 20231010, end: 20231013
  3. TECENTRIQ [Suspect]
     Active Substance: ATEZOLIZUMAB
     Indication: Lung neoplasm malignant
     Dosage: TIME INTERVAL: TOTAL: 1200 MG SINGLE DOSE,1 VIAL
     Route: 042
     Dates: start: 20231010, end: 20231010

REACTIONS (3)
  - Agranulocytosis [Fatal]
  - Pneumonia [Fatal]
  - Septic shock [Fatal]

NARRATIVE: CASE EVENT DATE: 20231023
